FAERS Safety Report 23271425 (Version 2)
Quarter: 2024Q1

REPORT INFORMATION
  Report Type: Spontaneous
  Country: NL (occurrence: NL)
  Receive Date: 20231207
  Receipt Date: 20240112
  Transmission Date: 20240410
  Serious: Yes (Hospitalization)
  Sender: FDA-Public Use
  Company Number: NL-BAYER-2023A175055

PATIENT
  Age: 33 Year

DRUGS (1)
  1. GADOBUTROL [Suspect]
     Active Substance: GADOBUTROL
     Dosage: 30 ML, ONCE
     Route: 042
     Dates: start: 20231123, end: 20231123

REACTIONS (8)
  - Rash macular [None]
  - Urticaria [None]
  - Pruritus [None]
  - Malaise [None]
  - Discomfort [None]
  - Erythema [Recovered/Resolved]
  - Swelling of eyelid [Recovered/Resolved]
  - Paraesthesia [Recovered/Resolved]

NARRATIVE: CASE EVENT DATE: 20231123
